FAERS Safety Report 13359070 (Version 1)
Quarter: 2017Q1

REPORT INFORMATION
  Report Type: Spontaneous
  Country: US (occurrence: US)
  Receive Date: 20170321
  Receipt Date: 20170321
  Transmission Date: 20170429
  Serious: Yes (Other)
  Sender: FDA-Public Use
  Company Number: None

PATIENT
  Age: 75 Year
  Sex: Female
  Weight: 56 kg

DRUGS (11)
  1. PROLIA [Suspect]
     Active Substance: DENOSUMAB
     Indication: OSTEOPOROSIS
     Dosage: ?          OTHER FREQUENCY:EVERY 6 MONTHS;?
     Route: 058
     Dates: start: 20160106, end: 20160707
  2. HYDROMORPHONE [Concomitant]
     Active Substance: HYDROMORPHONE
  3. ASPIRIN. [Concomitant]
     Active Substance: ASPIRIN
  4. ATIVAN [Concomitant]
     Active Substance: LORAZEPAM
  5. SPIRIVA [Concomitant]
     Active Substance: TIOTROPIUM BROMIDE MONOHYDRATE
  6. VITAMIN C [Concomitant]
     Active Substance: ASCORBIC ACID
  7. BUDESONIDE. [Concomitant]
     Active Substance: BUDESONIDE
  8. ALBUTEROL. [Concomitant]
     Active Substance: ALBUTEROL
  9. FENTANYL TRANSDERMAL SYSTEM [Concomitant]
     Active Substance: FENTANYL
  10. CALCIUM [Concomitant]
     Active Substance: CALCIUM
  11. VITAMIN D3 [Concomitant]
     Active Substance: CHOLECALCIFEROL

REACTIONS (2)
  - Osteonecrosis of jaw [None]
  - Tooth extraction [None]

NARRATIVE: CASE EVENT DATE: 20170201
